FAERS Safety Report 25287203 (Version 4)
Quarter: 2025Q3

REPORT INFORMATION
  Report Type: Spontaneous
  Country: JP (occurrence: JP)
  Receive Date: 20250509
  Receipt Date: 20250719
  Transmission Date: 20251020
  Serious: Yes (Life-Threatening, Hospitalization)
  Sender: MERCK SHARP & DOHME LLC
  Company Number: JP-009507513-2283594

PATIENT
  Age: 54 Year
  Sex: Female
  Weight: 54.3 kg

DRUGS (3)
  1. KEYTRUDA [Suspect]
     Active Substance: PEMBROLIZUMAB
     Indication: Triple negative breast cancer
     Dosage: 2 COURSES
     Route: 041
     Dates: start: 20250325, end: 20250415
  2. CARBOPLATIN [Suspect]
     Active Substance: CARBOPLATIN
     Indication: Triple negative breast cancer
     Route: 041
     Dates: start: 20250325, end: 20250422
  3. PACLITAXEL [Suspect]
     Active Substance: PACLITAXEL
     Indication: Triple negative breast cancer
     Route: 041
     Dates: start: 20250325, end: 20250422

REACTIONS (32)
  - Immune-mediated hepatic disorder [Recovering/Resolving]
  - Immune-mediated dermatitis [Recovered/Resolved]
  - Lymphocyte count decreased [Unknown]
  - Monocyte count increased [Unknown]
  - High density lipoprotein decreased [Unknown]
  - Prothrombin level increased [Unknown]
  - Blood triglycerides increased [Unknown]
  - Prothrombin time prolonged [Unknown]
  - Anisocytosis [Unknown]
  - White blood cell count increased [Unknown]
  - Antibody test abnormal [Unknown]
  - Antinuclear antibody increased [Unknown]
  - Blood calcium decreased [Unknown]
  - Blood sodium decreased [Unknown]
  - Blood chloride decreased [Unknown]
  - Blood glucose increased [Unknown]
  - Neutrophil count increased [Unknown]
  - Prothrombin level decreased [Unknown]
  - International normalised ratio increased [Unknown]
  - Activated partial thromboplastin time prolonged [Unknown]
  - Fibrin D dimer increased [Unknown]
  - Red blood cell count decreased [Unknown]
  - Haemoglobin decreased [Unknown]
  - Haematocrit decreased [Unknown]
  - Mean cell haemoglobin concentration increased [Unknown]
  - Platelet count decreased [Unknown]
  - Mean cell volume increased [Unknown]
  - Mean cell haemoglobin increased [Unknown]
  - Complement factor increased [Unknown]
  - Blood creatine phosphokinase decreased [Unknown]
  - Blood uric acid decreased [Unknown]
  - Basophil count decreased [Unknown]

NARRATIVE: CASE EVENT DATE: 20250422
